FAERS Safety Report 16557348 (Version 1)
Quarter: 2019Q3

REPORT INFORMATION
  Report Type: Report from Study
  Country: US (occurrence: US)
  Receive Date: 20190711
  Receipt Date: 20190711
  Transmission Date: 20191004
  Serious: Yes (Other)
  Sender: FDA-Public Use
  Company Number: US-ROCHE-2351444

PATIENT
  Sex: Female
  Weight: 39.2 kg

DRUGS (6)
  1. NUTROPIN AQ [Suspect]
     Active Substance: SOMATROPIN
     Indication: CHRONIC KIDNEY DISEASE
     Dosage: 0.4MG QD
     Route: 058
  2. ROCALTROL [Concomitant]
     Active Substance: CALCITRIOL
     Route: 048
  3. DELTASONE [Concomitant]
     Active Substance: PREDNISONE
     Route: 048
  4. PROGRAF [Concomitant]
     Active Substance: TACROLIMUS\TACROLIMUS ANHYDROUS
     Route: 048
  5. VITAMIN D3 [Concomitant]
     Active Substance: CHOLECALCIFEROL
     Dosage: 2 TABS BY MOUTH ONCE A DAY
     Route: 048
  6. CELLCEPT [Suspect]
     Active Substance: MYCOPHENOLATE MOFETIL\MYCOPHENOLATE MOFETIL HYDROCHLORIDE
     Indication: PRODUCT USED FOR UNKNOWN INDICATION
     Dosage: 400MG PO BID
     Route: 048

REACTIONS (3)
  - Proteinuria [Unknown]
  - Blood homocysteine increased [Unknown]
  - Deep vein thrombosis [Unknown]
